FAERS Safety Report 20872247 (Version 1)
Quarter: 2022Q2

REPORT INFORMATION
  Report Type: Spontaneous
  Country: TW (occurrence: TW)
  Receive Date: 20220525
  Receipt Date: 20220525
  Transmission Date: 20220721
  Serious: Yes (Hospitalization, Other)
  Sender: FDA-Public Use
  Company Number: TW-Accord-264187

PATIENT
  Age: 28 Year
  Sex: Male

DRUGS (2)
  1. NALTREXONE [Interacting]
     Active Substance: NALTREXONE
     Indication: Alcoholism
     Dosage: 50 MG ONCE PER DAY
  2. ACAMPROSATE [Interacting]
     Active Substance: ACAMPROSATE
     Indication: Alcoholism
     Dosage: 333 MG (3 TIMER PER DAY)

REACTIONS (2)
  - Major depression [Recovered/Resolved]
  - Drug interaction [Unknown]
